FAERS Safety Report 8118493-5 (Version None)
Quarter: 2012Q1

REPORT INFORMATION
  Report Type: 
  Country: None (occurrence: None)
  Receive Date: 20120207
  Receipt Date: 20120203
  Transmission Date: 20120608
  Serious: Yes (Hospitalization, Other)
  Sender: FDA-Public Use
  Company Number: JP-PFIZER INC-2012016084

PATIENT
  Age: 39 Year
  Sex: Male
  Weight: 100 kg

DRUGS (5)
  1. AMOXAPINE [Suspect]
     Indication: DEPRESSION
     Dosage: 10 MG, 3X/DAY
     Route: 048
     Dates: start: 20110910, end: 20110916
  2. BETAMAC [Suspect]
     Dosage: 100 MG, 3X/DAY
     Route: 048
     Dates: start: 20110816
  3. BETAMAC [Suspect]
     Indication: DEPRESSION
     Dosage: 50 MG, 3X/DAY
     Route: 048
     Dates: start: 20110806, end: 20110815
  4. AMOXAPINE [Suspect]
     Dosage: 25 MG, 1X/DAY
     Route: 048
     Dates: start: 20110917, end: 20120106
  5. AMOXAPINE [Suspect]
     Dosage: 25 MG, 3X/DAY
     Route: 048
     Dates: start: 20120107, end: 20120108

REACTIONS (2)
  - CARDIAC FAILURE [None]
  - CONGESTIVE CARDIOMYOPATHY [None]
